FAERS Safety Report 11345250 (Version 2)
Quarter: 2015Q3

REPORT INFORMATION
  Report Type: Report from Study
  Country: US (occurrence: US)
  Receive Date: 20150806
  Receipt Date: 20150807
  Transmission Date: 20151125
  Serious: No
  Sender: FDA-Public Use
  Company Number: US-ABBVIE-15P-163-1413330-00

PATIENT
  Sex: Male

DRUGS (5)
  1. MODERIBA [Suspect]
     Active Substance: RIBAVIRIN
     Indication: HEPATITIS C VIRUS TEST POSITIVE
     Route: 048
     Dates: start: 201506
  2. MELATONIN [Concomitant]
     Active Substance: MELATONIN
     Indication: PRODUCT USED FOR UNKNOWN INDICATION
  3. VIEKIRA PAK [Suspect]
     Active Substance: DASABUVIR\OMBITASVIR\PARITAPREVIR\RITONAVIR
     Indication: HEPATITIS C VIRUS TEST POSITIVE
  4. VIEKIRA PAK [Suspect]
     Active Substance: DASABUVIR\OMBITASVIR\PARITAPREVIR\RITONAVIR
     Indication: HEPATITIS C
     Dosage: TAKE VIEKIRA PER PACKAGE DIRECTION IN THE MORNING AND EVENING WITH FOOD
     Route: 048
     Dates: start: 201505
  5. MODERIBA [Suspect]
     Active Substance: RIBAVIRIN
     Indication: HEPATITIS C
     Route: 048
     Dates: end: 201506

REACTIONS (14)
  - Energy increased [Not Recovered/Not Resolved]
  - Depression [Not Recovered/Not Resolved]
  - Sneezing [Not Recovered/Not Resolved]
  - Blepharospasm [Not Recovered/Not Resolved]
  - Fatigue [Not Recovered/Not Resolved]
  - Sleep disorder [Not Recovered/Not Resolved]
  - Abdominal pain upper [Not Recovered/Not Resolved]
  - Insomnia [Not Recovered/Not Resolved]
  - Decreased interest [Not Recovered/Not Resolved]
  - Unevaluable event [Not Recovered/Not Resolved]
  - Negative thoughts [Not Recovered/Not Resolved]
  - Anhedonia [Not Recovered/Not Resolved]
  - Nausea [Not Recovered/Not Resolved]
  - Testicular pain [Recovered/Resolved]
